FAERS Safety Report 9787484 (Version 1)
Quarter: 2013Q4

REPORT INFORMATION
  Report Type: Spontaneous
  Country: GB (occurrence: GB)
  Receive Date: 20131230
  Receipt Date: 20131230
  Transmission Date: 20140711
  Serious: Yes (Other)
  Sender: FDA-Public Use
  Company Number: GB-BRISTOL-MYERS SQUIBB COMPANY-19943745

PATIENT
  Age: 68 Year
  Sex: Male

DRUGS (1)
  1. SUSTIVA TABS 600 MG [Suspect]
     Dosage: FILM COATED TABLETS
     Route: 048

REACTIONS (1)
  - Gastrointestinal disorder [Unknown]
